FAERS Safety Report 23920245 (Version 4)
Quarter: 2024Q3

REPORT INFORMATION
  Report Type: Spontaneous
  Country: AR (occurrence: AR)
  Receive Date: 20240530
  Receipt Date: 20240702
  Transmission Date: 20241016
  Serious: Yes (Death, Hospitalization, Other)
  Sender: APELLIS PHARMACEUTICALS
  Company Number: AR-BIOVITRUM-2024-AR-007359

PATIENT
  Weight: 90 kg

DRUGS (4)
  1. EMPAVELI [Suspect]
     Active Substance: PEGCETACOPLAN
     Indication: Paroxysmal nocturnal haemoglobinuria
     Dosage: 2 TIMES A WEEK
     Route: 058
     Dates: start: 20240104
  2. EMPAVELI [Suspect]
     Active Substance: PEGCETACOPLAN
     Dosage: 2 TIMES A WEEK
     Route: 058
     Dates: start: 202312
  3. IDARUBICIN [Concomitant]
     Active Substance: IDARUBICIN
     Indication: Product used for unknown indication
     Dosage: 3 DAYS
  4. CYTARABINE [Concomitant]
     Active Substance: CYTARABINE
     Indication: Product used for unknown indication
     Dosage: 7 DAYS

REACTIONS (6)
  - Bacterial sepsis [Fatal]
  - Acute myeloid leukaemia [Unknown]
  - Thrombosis [Unknown]
  - Pulmonary embolism [Unknown]
  - Product dose omission issue [Unknown]
  - Pneumonia [Fatal]

NARRATIVE: CASE EVENT DATE: 20240409
